FAERS Safety Report 17652612 (Version 5)
Quarter: 2021Q1

REPORT INFORMATION
  Report Type: Spontaneous
  Country: US (occurrence: US)
  Receive Date: 20200409
  Receipt Date: 20210325
  Transmission Date: 20210419
  Serious: No
  Sender: FDA-Public Use
  Company Number: US-VERTEX PHARMACEUTICALS-2020-007990

PATIENT
  Age: 3 Year
  Sex: Female
  Weight: 13.15 kg

DRUGS (7)
  1. ORKAMBI [Suspect]
     Active Substance: IVACAFTOR\LUMACAFTOR
     Indication: CYSTIC FIBROSIS
     Dosage: 100 MG LUMACAFTOR/ 125 MG IVACAFTOR GRANULES, 1 PACKET EVERY 12 HOURS
     Route: 048
     Dates: start: 201904
  2. PULMOZYME [Concomitant]
     Active Substance: DORNASE ALFA
     Dosage: 2.5 MILLIGRAM, UNK
  3. VITAMIN D3 [Concomitant]
     Active Substance: CHOLECALCIFEROL
     Dosage: 400/ML DROPS
  4. ALBUTEROL SULFATE. [Concomitant]
     Active Substance: ALBUTEROL SULFATE
     Dosage: 2 PUFFS, BID (HFA)
  5. CREON [Concomitant]
     Active Substance: PANCRELIPASE AMYLASE\PANCRELIPASE LIPASE\PANCRELIPASE PROTEASE
     Dosage: 6K?19K?30K, CAPSULE, DELAYED RELEASE
  6. ORKAMBI [Suspect]
     Active Substance: IVACAFTOR\LUMACAFTOR
     Dosage: 150MG/188MG
     Route: 048
     Dates: start: 20210224
  7. HYPERSAL [Concomitant]
     Active Substance: SODIUM CHLORIDE
     Dosage: 3.5% VIAL?NEB
     Route: 045

REACTIONS (4)
  - Staphylococcal infection [Unknown]
  - COVID-19 [Unknown]
  - Cough [Recovering/Resolving]
  - Illness [Not Recovered/Not Resolved]

NARRATIVE: CASE EVENT DATE: 202003
